FAERS Safety Report 9538703 (Version 1)
Quarter: 2013Q2

REPORT INFORMATION
  Report Type: Spontaneous
  Country: US (occurrence: None)
  Receive Date: 20130517
  Receipt Date: 20130517
  Transmission Date: 20140414
  Serious: Yes (Other)
  Sender: FDA-Public Use
  Company Number: 1000042943

PATIENT
  Age: 74 Year
  Sex: Female

DRUGS (4)
  1. VIIBRYD [Suspect]
     Indication: DEPRESSION
     Dosage: 30MG (30 MG, 1 IN 1 D), ORAL
     Route: 048
     Dates: start: 2012, end: 2012
  2. KLONOPIN [Concomitant]
  3. ASPIRIN (ACETYLSALICYLIC ACID) (ACETYLSALICYLIC ACID) [Concomitant]
  4. DEMADEX (TORSEMIDE) (TORSEMIDE) [Concomitant]

REACTIONS (4)
  - Morbid thoughts [None]
  - Musculoskeletal stiffness [None]
  - Feeling hot [None]
  - Hyperhidrosis [None]
